FAERS Safety Report 16705560 (Version 4)
Quarter: 2020Q4

REPORT INFORMATION
  Report Type: Report from Study
  Country: US (occurrence: US)
  Receive Date: 20190815
  Receipt Date: 20201015
  Transmission Date: 20210113
  Serious: No
  Sender: FDA-Public Use
  Company Number: PHEH2019US033526

PATIENT
  Age: 15 Year
  Sex: Male
  Weight: 53.07 kg

DRUGS (2)
  1. GILENYA [Suspect]
     Active Substance: FINGOLIMOD HYDROCHLORIDE
     Indication: MULTIPLE SCLEROSIS
     Dosage: 0.5 MG, QD
     Route: 048
     Dates: start: 20180703
  2. GILENYA [Suspect]
     Active Substance: FINGOLIMOD HYDROCHLORIDE
     Dosage: 0.5 MG (EVERY OTHER DAY)
     Route: 048
     Dates: start: 202004

REACTIONS (8)
  - Blood potassium increased [Unknown]
  - Blood cholesterol increased [Unknown]
  - White blood cell count decreased [Unknown]
  - Extrasystoles [Unknown]
  - Ocular discomfort [Unknown]
  - Rash [Unknown]
  - Blood calcium increased [Unknown]
  - Headache [Unknown]

NARRATIVE: CASE EVENT DATE: 20190809
